FAERS Safety Report 8967771 (Version 2)
Quarter: 2013Q1

REPORT INFORMATION
  Report Type: Spontaneous
  Country: US (occurrence: US)
  Receive Date: 20121218
  Receipt Date: 20130110
  Transmission Date: 20140127
  Serious: Yes (Hospitalization)
  Sender: FDA-Public Use
  Company Number: US-VERTEX PHARMACEUTICALS INC.-2012-026257

PATIENT
  Age: 57 None
  Sex: Male
  Weight: 77 kg

DRUGS (7)
  1. INCIVEK [Suspect]
     Indication: HEPATITIS C
     Dosage: 750 MG, TID
     Route: 048
     Dates: start: 20110811, end: 2011
  2. RIBASPHERE [Suspect]
     Indication: HEPATITIS C
     Dosage: UNK, BID
     Dates: start: 20110811, end: 2011
  3. PEGASYS [Suspect]
     Indication: HEPATITIS C
     Dosage: 180 ?G, QW
     Route: 058
     Dates: start: 20110811, end: 2011
  4. OMEPRAZOLE [Concomitant]
  5. TRAZODONE [Concomitant]
     Dosage: UNK
     Dates: end: 2011
  6. CITALOPRAM [Concomitant]
  7. NADOLOL [Concomitant]

REACTIONS (4)
  - Pneumonia [Recovered/Resolved]
  - Influenza like illness [Unknown]
  - Productive cough [Unknown]
  - Off label use [Unknown]
